FAERS Safety Report 6970998-6 (Version None)
Quarter: 2010Q3

REPORT INFORMATION
  Report Type: 
  Country: None (occurrence: None)
  Receive Date: 20100908
  Receipt Date: 20100825
  Transmission Date: 20110219
  Serious: Yes (Hospitalization)
  Sender: FDA-Public Use
  Company Number: IT-ALEXION-A201000771

PATIENT

DRUGS (2)
  1. SOLIRIS [Suspect]
     Indication: PAROXYSMAL NOCTURNAL HAEMOGLOBINURIA
     Dosage: 300 MG, CYCLICAL
     Route: 042
     Dates: start: 20090101
  2. SOLIRIS [Suspect]
     Dosage: 900 MG, UNK
     Route: 042

REACTIONS (1)
  - RENAL CELL CARCINOMA [None]
